FAERS Safety Report 8183963-0 (Version None)
Quarter: 2012Q1

REPORT INFORMATION
  Report Type: 
  Country: None (occurrence: None)
  Receive Date: 20120305
  Receipt Date: 20120227
  Transmission Date: 20120608
  Serious: Yes (Other)
  Sender: FDA-Public Use
  Company Number: US-ROCHE-784605

PATIENT
  Sex: Male
  Weight: 77.18 kg

DRUGS (2)
  1. MINOCYCLINE HCL [Concomitant]
     Indication: PRODUCT USED FOR UNKNOWN INDICATION
  2. ACCUTANE [Suspect]
     Indication: ACNE
     Route: 048
     Dates: start: 19991201, end: 20000501

REACTIONS (6)
  - STRESS [None]
  - INFLAMMATORY BOWEL DISEASE [None]
  - LIP DRY [None]
  - CROHN'S DISEASE [None]
  - HAEMORRHOIDS [None]
  - DRY SKIN [None]
